FAERS Safety Report 5687402-0 (Version None)
Quarter: 2008Q1

REPORT INFORMATION
  Report Type: 
  Country: None (occurrence: None)
  Receive Date: 20080328
  Receipt Date: 20061205
  Transmission Date: 20080703
  Serious: No
  Sender: FDA-Public Use
  Company Number: US-BAYER-US-2006-037454

PATIENT
  Age: 39 Year
  Sex: Female

DRUGS (3)
  1. MIRENA [Suspect]
     Indication: CONTRACEPTION
     Route: 015
     Dates: start: 20061129, end: 20061130
  2. WELLBUTRIN [Concomitant]
  3. LEXAPRO [Concomitant]

REACTIONS (5)
  - DRUG HYPERSENSITIVITY [None]
  - JOINT SWELLING [None]
  - RASH [None]
  - RASH MACULAR [None]
  - SWELLING FACE [None]
